FAERS Safety Report 5366472-3 (Version None)
Quarter: 2007Q2

REPORT INFORMATION
  Report Type: 
  Country: None (occurrence: None)
  Receive Date: 20070622
  Receipt Date: 20070613
  Transmission Date: 20071010
  Serious: Yes (Other)
  Sender: FDA-Public Use
  Company Number: GB-JNJFOC-20070602703

PATIENT
  Age: 75 Year
  Sex: Female

DRUGS (10)
  1. LEVOFLOXACIN [Suspect]
     Indication: URINARY TRACT INFECTION
     Route: 048
  2. ASPIRIN [Concomitant]
     Indication: TRANSIENT ISCHAEMIC ATTACK
     Route: 042
  3. ATENOLOL [Concomitant]
     Indication: HYPERTENSION
     Route: 065
  4. BENDROFLUMETHIAZIDE [Concomitant]
     Indication: HYPERTENSION
     Route: 065
  5. CANDESARTAN [Concomitant]
     Indication: HYPERTENSION
     Route: 065
  6. CLOPIDOGREL [Concomitant]
     Route: 065
  7. NITROFURANTOIN [Concomitant]
     Indication: URINARY TRACT INFECTION
     Route: 065
  8. QUININE BISULPHATE [Concomitant]
     Indication: MUSCLE SPASMS
     Route: 065
  9. SIMVASTATIN [Concomitant]
     Indication: TRANSIENT ISCHAEMIC ATTACK
     Route: 065
  10. TOLTERODINE [Concomitant]
     Route: 065

REACTIONS (3)
  - JAUNDICE CHOLESTATIC [None]
  - LIVER FUNCTION TEST ABNORMAL [None]
  - MALAISE [None]
